FAERS Safety Report 10457458 (Version 2)
Quarter: 2014Q4

REPORT INFORMATION
  Report Type: Spontaneous
  Country: JP (occurrence: JP)
  Receive Date: 20140916
  Receipt Date: 20141002
  Transmission Date: 20150528
  Serious: Yes (Death, Other)
  Sender: FDA-Public Use
  Company Number: JP-MYLANLABS-2014M1004538

PATIENT

DRUGS (19)
  1. CYCLOPHOSPHAMIDE. [Suspect]
     Active Substance: CYCLOPHOSPHAMIDE
     Route: 042
  2. MELPHALAN [Concomitant]
     Active Substance: MELPHALAN
     Indication: BONE MARROW TRANSPLANT
     Route: 065
  3. METHOTREXATE CAPSULES 2MG ^MYLAN^ [Suspect]
     Active Substance: METHOTREXATE
     Indication: LEUKAEMIA RECURRENT
     Dosage: 12.5MG EACH FOR 7 TIMES IN THE FIRST REMISSION-INDUCTION THERAPY (TOTAL DOSE 87.5MG)
     Route: 037
  4. METHOTREXATE CAPSULES 2MG ^MYLAN^ [Suspect]
     Active Substance: METHOTREXATE
     Dosage: ROUTE: PARENTERAL; 15MG/M2 AT THE EARLY PHASE OF BONE MARROW TRANSPLANTATION
     Route: 050
  5. VINCRISTINE [Suspect]
     Active Substance: VINCRISTINE
     Route: 042
  6. BUSULFAN [Concomitant]
     Active Substance: BUSULFAN
     Indication: BONE MARROW TRANSPLANT
     Route: 065
  7. ETOPOSIDE. [Concomitant]
     Active Substance: ETOPOSIDE
     Indication: BONE MARROW TRANSPLANT
     Route: 065
  8. METHOTREXATE CAPSULES 2MG ^MYLAN^ [Suspect]
     Active Substance: METHOTREXATE
     Indication: ACUTE LYMPHOCYTIC LEUKAEMIA
     Dosage: 1G/M2 IN FIRST REMISSION-INDUCTION THERAPY
     Route: 042
  9. METHOTREXATE CAPSULES 2MG ^MYLAN^ [Suspect]
     Active Substance: METHOTREXATE
     Dosage: TWO COURSES; 12MG EACH (TOTAL DOSE: 24MG)
     Route: 037
  10. DAUNORUBICIN [Suspect]
     Active Substance: DAUNORUBICIN
     Route: 042
  11. ASPARAGINASE [Suspect]
     Active Substance: ASPARAGINASE
     Route: 042
  12. TACROLIMUS. [Concomitant]
     Active Substance: TACROLIMUS
     Indication: GRAFT VERSUS HOST DISEASE
     Route: 065
  13. PREDNISOLONE                       /00016202/ [Suspect]
     Active Substance: PREDNISOLONE
     Route: 037
  14. CYTARABINE. [Suspect]
     Active Substance: CYTARABINE
     Route: 037
  15. PREDNISOLONE                       /00016202/ [Suspect]
     Active Substance: PREDNISOLONE
     Indication: PROPHYLAXIS AGAINST GRAFT VERSUS HOST DISEASE
     Route: 042
  16. CICLOSPORIN [Concomitant]
     Active Substance: CYCLOSPORINE
     Indication: GRAFT VERSUS HOST DISEASE
     Route: 065
  17. METHOTREXATE CAPSULES 2MG ^MYLAN^ [Suspect]
     Active Substance: METHOTREXATE
     Dosage: ROUTE: PARENTERAL; 10 MG/M2 THREE TIMES AT THE EARLY PHASE OF BONE MARROW TRANSPLANT
     Route: 050
  18. METHOTREXATE CAPSULES 2MG ^MYLAN^ [Suspect]
     Active Substance: METHOTREXATE
     Dosage: ROUTE: PARENTERAL; 9 MG/M2 THREE TIMES AT THE LATE PHASE OF BONE MARROW TRANSPLANTATION
     Route: 050
  19. METHOTREXATE CAPSULES 2MG ^MYLAN^ [Suspect]
     Active Substance: METHOTREXATE
     Dosage: 3G/M2; RECEIVED TWICE IN FIRST REMISSION-INDUCTION THERAPY
     Route: 042

REACTIONS (3)
  - Respiratory failure [Fatal]
  - Myocardial fibrosis [Not Recovered/Not Resolved]
  - Myelopathy [Not Recovered/Not Resolved]
